FAERS Safety Report 11317972 (Version 1)
Quarter: 2015Q3

REPORT INFORMATION
  Report Type: Report from Study
  Country: CZ (occurrence: CZ)
  Receive Date: 20150728
  Receipt Date: 20150728
  Transmission Date: 20151125
  Serious: Yes (Other)
  Sender: FDA-Public Use
  Company Number: CZ-TEVA-580666ISR

PATIENT
  Age: 25 Year
  Sex: Male

DRUGS (3)
  1. OLANZAPINE. [Suspect]
     Active Substance: OLANZAPINE
     Dosage: 10 MILLIGRAM DAILY;
  2. HALOPERIDOL. [Concomitant]
     Active Substance: HALOPERIDOL
  3. AFLUDITEN [Concomitant]

REACTIONS (1)
  - Drug abuse [Unknown]
